FAERS Safety Report 23289904 (Version 1)
Quarter: 2023Q4

REPORT INFORMATION
  Report Type: Spontaneous
  Country: ES (occurrence: ES)
  Receive Date: 20231212
  Receipt Date: 20231212
  Transmission Date: 20240110
  Serious: Yes (Other)
  Sender: FDA-Public Use
  Company Number: ES-AUROBINDO-AUR-APL-2023-035443

PATIENT
  Age: 62 Year
  Sex: Female
  Weight: 90 kg

DRUGS (40)
  1. QUETIAPINE [Suspect]
     Active Substance: QUETIAPINE
     Dosage: 0.5 MG, QD
     Route: 065
  2. QUETIAPINE [Suspect]
     Active Substance: QUETIAPINE
     Indication: Personality disorder
     Dosage: 400 MG, QD  (0-0-1-0)
     Route: 065
  3. ACETAMINOPHEN [Concomitant]
     Active Substance: ACETAMINOPHEN
     Indication: Arthralgia
     Dosage: 650 MG PRESCRIBED: 1-1-1-0; USED: 1-1-1-0
     Route: 065
     Dates: start: 2019
  4. AMISULPRIDE [Concomitant]
     Active Substance: AMISULPRIDE
     Dosage: 100 MG; PRESCRIPTION: 0-0-0-0-0.5; USED PATTERN: 0-0-0-0-0.5
     Route: 065
  5. AMISULPRIDE [Concomitant]
     Active Substance: AMISULPRIDE
     Indication: Personality disorder
     Dosage: 50 MG, QD (0-0-0-0.5)
     Route: 065
  6. ATORVASTATIN CALCIUM [Concomitant]
     Active Substance: ATORVASTATIN CALCIUM
     Indication: Hypercholesterolaemia
     Dosage: 40 MG, QD (0-0-1-0 )
     Route: 065
  7. CALCIFEDIOL [Concomitant]
     Active Substance: CALCIFEDIOL
     Indication: Vitamin D deficiency
     Dosage: .0089 MILLIGRAM DAILY; 0.266 MG 1 PER MONTH; DOSAGE USED: 1 PER MONTH
     Route: 065
  8. CLOPIDOGREL [Concomitant]
     Active Substance: CLOPIDOGREL BISULFATE
     Indication: Cerebrovascular accident prophylaxis
     Dosage: 1 DOSAGE FORM, QD
     Route: 065
     Dates: start: 2018
  9. CLOPIDOGREL [Concomitant]
     Active Substance: CLOPIDOGREL BISULFATE
     Indication: Cerebrovascular accident
  10. EMPAGLIFLOZIN [Concomitant]
     Active Substance: EMPAGLIFLOZIN
     Indication: Hypertension
     Dosage: 5 MG, BID (1000 MG/5 MG (1-0-1-0), TWO TIMES A DAY)
     Route: 065
  11. EMPAGLIFLOZIN [Concomitant]
     Active Substance: EMPAGLIFLOZIN
     Indication: Diabetes mellitus
  12. EMPAGLIFLOZIN\METFORMIN HYDROCHLORIDE [Concomitant]
     Active Substance: EMPAGLIFLOZIN\METFORMIN HYDROCHLORIDE
     Dosage: 1000 MG/5 MG (1-0-1-0), TWO TIMES A DAY
     Route: 065
  13. EMPAGLIFLOZIN\METFORMIN HYDROCHLORIDE [Concomitant]
     Active Substance: EMPAGLIFLOZIN\METFORMIN HYDROCHLORIDE
     Indication: Diabetes mellitus
     Dosage: UNK UNK (1-0-1-0) (0.5/DAY)
     Route: 065
  14. GLYCOPYRROLATE\INDACATEROL MALEATE [Concomitant]
     Active Substance: GLYCOPYRROLATE\INDACATEROL MALEATE
     Indication: Chronic obstructive pulmonary disease
     Dosage: 43 UG, Q24H (1 UD/24H)
     Route: 065
  15. INDACATEROL [Concomitant]
     Active Substance: INDACATEROL
     Indication: Chronic obstructive pulmonary disease
     Dosage: 85 UG
     Route: 065
  16. LIRAGLUTIDE [Concomitant]
     Active Substance: LIRAGLUTIDE
     Indication: Hypertension
     Dosage: 6 MILLIGRAM PER MILLILITRE (PRESCRIBED REGIMEN: 1 EVERY 7 DAYS; USED REGIMEN:1 EVERY 7 DAYS)
     Route: 065
  17. LIRAGLUTIDE [Concomitant]
     Active Substance: LIRAGLUTIDE
     Dosage: 6 MILLIGRAM/MILILITER ((1UD/7DAYS))
     Route: 065
  18. LIRAGLUTIDE [Concomitant]
     Active Substance: LIRAGLUTIDE
     Indication: Diabetes mellitus
     Dosage: UNK UNK (1 UD/ 7 DAYS)
     Route: 065
  19. METFORMIN [Concomitant]
     Active Substance: METFORMIN HYDROCHLORIDE
     Dosage: 1.05 MG, QD
     Route: 065
  20. METFORMIN [Concomitant]
     Active Substance: METFORMIN HYDROCHLORIDE
     Indication: Diabetes mellitus
     Dosage: 1000 MG, QD
     Route: 065
     Dates: start: 2010
  21. PANTOPRAZOLE [Concomitant]
     Active Substance: PANTOPRAZOLE
     Indication: Gastrooesophageal reflux disease
     Dosage: 1 DOSAGE FORM, QD (40 MG DOSAGE PRESCRIBED: 1-0-0-0; USED DOSAGE: 1-0-0-0-0)
     Route: 065
     Dates: start: 2016
  22. PRAMIPEXOLE [Concomitant]
     Active Substance: PRAMIPEXOLE
     Indication: Tremor
     Dosage: 1.05 MG, QD (1-0-0-0)
     Route: 065
  23. PRAMIPEXOLE [Concomitant]
     Active Substance: PRAMIPEXOLE
     Indication: Parkinsonism
  24. ALBUTEROL [Concomitant]
     Active Substance: ALBUTEROL
     Indication: Chronic obstructive pulmonary disease
     Dosage: 100 MCG/IN. DOSAGE PRESCRIBED: ON-DEMAND; DOSAGE USED: ON-DEMAND
     Route: 065
     Dates: start: 2016
  25. ALBUTEROL [Concomitant]
     Active Substance: ALBUTEROL
     Dosage: 100 MCG/PUL ON DEMAND
     Route: 065
  26. TRAMADOL HYDROCHLORIDE [Concomitant]
     Active Substance: TRAMADOL HYDROCHLORIDE
     Dosage: 75 MG
     Route: 065
  27. TRAMADOL HYDROCHLORIDE [Concomitant]
     Active Substance: TRAMADOL HYDROCHLORIDE
     Indication: Arthralgia
     Dosage: 100 MG/ML, (ON DEMAND)
     Route: 065
  28. TRAMADOL HYDROCHLORIDE [Concomitant]
     Active Substance: TRAMADOL HYDROCHLORIDE
     Dosage: UNK, ON DEMAND
     Route: 065
  29. ACETAMINOPHEN\TRAMADOL [Concomitant]
     Active Substance: ACETAMINOPHEN\TRAMADOL
     Indication: Arthralgia
     Dosage: UNK UNK (1-1-1-0 ) (75MG/650MG)
     Route: 065
  30. VORTIOXETINE [Concomitant]
     Active Substance: VORTIOXETINE
     Indication: Personality disorder
     Dosage: 15 MG; PRESCRIPTION: 1-0-0-0; USED PATTERN: 1-0-0-0-0
     Route: 065
  31. ALPRAZOLAM [Interacting]
     Active Substance: ALPRAZOLAM
     Indication: Personality disorder
     Dosage: 0.5 MILLIGRAM, ONCE A DAY (0-0-1-0-0))
     Route: 065
  32. FUROSEMIDE [Interacting]
     Active Substance: FUROSEMIDE
     Dosage: 40 MILLIGRAM (1-0.5-0-0)
     Route: 065
     Dates: start: 2014
  33. FUROSEMIDE [Interacting]
     Active Substance: FUROSEMIDE
     Indication: Hypertension
     Dosage: HALF DOSE PER DAY (1-0.5-0-0)
     Route: 065
  34. GABAPENTIN [Interacting]
     Active Substance: GABAPENTIN
     Indication: Arthralgia
     Dosage: 300 MG, TID (300 MILLIGRAM, 3 TIMES A DAY (1-1-1-0)
     Route: 065
     Dates: start: 2019
  35. GABAPENTIN [Interacting]
     Active Substance: GABAPENTIN
     Indication: Personality disorder
  36. LORMETAZEPAM [Interacting]
     Active Substance: LORMETAZEPAM
     Indication: Personality disorder
     Dosage: 2 MG, QD (0-0-0-1)
     Route: 065
  37. MANIDIPINE [Interacting]
     Active Substance: MANIDIPINE
     Dosage: 10 MG, QD (0-0-2-0)
     Route: 065
  38. MANIDIPINE [Interacting]
     Active Substance: MANIDIPINE
     Indication: Hypertension
     Dosage: 20 MG, QD (0-0-2-0)
     Route: 065
     Dates: start: 2014
  39. PIMOZIDE [Interacting]
     Active Substance: PIMOZIDE
     Indication: Personality disorder
     Dosage: 1 MILLIGRAM (0-0-1-0), DOSAGE USED: (0-0-1-0-0)
     Route: 065
  40. VALSARTAN [Interacting]
     Active Substance: VALSARTAN
     Indication: Hypertension
     Dosage: 320 MG, QD (1-0-0-0)
     Route: 065
     Dates: start: 2014

REACTIONS (8)
  - Hallucination [Recovered/Resolved]
  - Drug interaction [Recovered/Resolved]
  - Parkinsonism [Recovered/Resolved]
  - Somnolence [Recovered/Resolved]
  - Hypoglycaemia [Recovered/Resolved]
  - Hypotension [Recovered/Resolved]
  - Tachycardia [Recovered/Resolved]
  - Hyperhidrosis [Recovered/Resolved]
